FAERS Safety Report 7860569-1 (Version None)
Quarter: 2011Q4

REPORT INFORMATION
  Report Type: 
  Country: None (occurrence: None)
  Receive Date: 20111027
  Receipt Date: 20111017
  Transmission Date: 20120403
  Serious: Yes (Other)
  Sender: FDA-Public Use
  Company Number: US-BAYER-2011-016868

PATIENT
  Age: 31 Year
  Sex: Female
  Weight: 79.365 kg

DRUGS (13)
  1. AMOXICILLIN [Concomitant]
     Dosage: 500 MG, UNK
     Dates: start: 20100401
  2. DIFLUCAN [Concomitant]
     Dosage: 150 MG, UNK
  3. DROSPIRENONE AND ETHINYL ESTRADIOL [Suspect]
     Indication: CONTRACEPTION
  4. YASMIN [Suspect]
     Indication: CONTRACEPTION
  5. FLUCONAZOLE [Concomitant]
     Dosage: 150 MG, UNK
     Dates: start: 20100401
  6. DROSPIRENONE AND ETHINYL ESTRADIOL [Suspect]
     Indication: ACNE
     Dosage: UNK
     Dates: start: 20040101, end: 20110101
  7. LEVOTHYROXINE SODIUM [Concomitant]
     Dosage: 0.05 MG, UNK
     Dates: start: 20100424
  8. IMITREX [Concomitant]
     Indication: MIGRAINE
     Dosage: 100 MG, UNK
  9. YASMIN [Suspect]
     Indication: ACNE
     Dosage: UNK
     Route: 048
     Dates: start: 20040101, end: 20110101
  10. AMITIZA [Concomitant]
     Indication: CONSTIPATION
     Dosage: 8 ?G, UNK
     Route: 048
     Dates: start: 20100401
  11. FLUTICASONE PROPIONATE [Concomitant]
     Dosage: UNK
     Dates: start: 20100401
  12. PRILOSEC [Concomitant]
     Dosage: 20 MG, UNK
  13. ZYRTEC [Concomitant]
     Indication: SEASONAL ALLERGY
     Dosage: 10 MG, UNK
     Route: 048

REACTIONS (9)
  - PULMONARY EMBOLISM [None]
  - CEREBROVASCULAR ACCIDENT [None]
  - PAIN [None]
  - BILIARY COLIC [None]
  - DEEP VEIN THROMBOSIS [None]
  - INJURY [None]
  - MYOCARDIAL INFARCTION [None]
  - GALLBLADDER DISORDER [None]
  - CHOLECYSTITIS CHRONIC [None]
